FAERS Safety Report 7402352-7 (Version None)
Quarter: 2011Q2

REPORT INFORMATION
  Report Type: 
  Country: None (occurrence: None)
  Receive Date: 20110401
  Receipt Date: 20110325
  Transmission Date: 20111010
  Serious: Yes (Hospitalization)
  Sender: FDA-Public Use
  Company Number: 2010SP057063

PATIENT
  Age: 40 Year
  Sex: Female
  Weight: 81.6475 kg

DRUGS (2)
  1. IBUPROFEN [Concomitant]
  2. NUVARING [Suspect]
     Indication: CONTRACEPTION
     Dates: start: 20070701, end: 20081101

REACTIONS (6)
  - PULMONARY EMBOLISM [None]
  - INJURY [None]
  - HEADACHE [None]
  - EMOTIONAL DISORDER [None]
  - MENTAL DISORDER [None]
  - HYPERCOAGULATION [None]
